FAERS Safety Report 18722606 (Version 4)
Quarter: 2023Q2

REPORT INFORMATION
  Report Type: Report from Study
  Country: US (occurrence: US)
  Receive Date: 20210111
  Receipt Date: 20230626
  Transmission Date: 20230722
  Serious: Yes (Death, Other)
  Sender: FDA-Public Use
  Company Number: US-ACADIA PHARMACEUTICALS INC.-ACA-2020-PIM-004075

PATIENT
  Age: 77 Year
  Sex: Female

DRUGS (25)
  1. NUPLAZID [Suspect]
     Active Substance: PIMAVANSERIN TARTRATE
     Indication: Parkinson^s disease
     Dosage: 34 MILLIGRAM, QD
     Route: 048
     Dates: start: 20200708, end: 202103
  2. NUPLAZID [Suspect]
     Active Substance: PIMAVANSERIN TARTRATE
     Dosage: 34 MILLIGRAM, QD
     Route: 048
     Dates: end: 20230615
  3. ACETIC ACID [Concomitant]
     Active Substance: ACETIC ACID
  4. ALENDRONATE SODIUM [Concomitant]
     Active Substance: ALENDRONATE SODIUM
     Dosage: 10 MILLIGRAM
  5. CITALOPRAM [Concomitant]
     Active Substance: CITALOPRAM HYDROBROMIDE
     Dosage: 10 MILLIGRAM
  6. CLONAZEPAM [Concomitant]
     Active Substance: CLONAZEPAM
     Dosage: 1 MILLIGRAM
  7. ESTRADIOL [Concomitant]
     Active Substance: ESTRADIOL
     Dosage: 0.01 % CREAM/APPL
  8. FLUTICASONE [Concomitant]
     Active Substance: FLUTICASONE
  9. OMEPRAZOLE [Concomitant]
     Active Substance: OMEPRAZOLE
     Dosage: 20 MILLIGRAM
  10. PROPRANOLOL [Concomitant]
     Active Substance: PROPRANOLOL HYDROCHLORIDE
  11. RASAGILINE MESYLATE [Concomitant]
     Active Substance: RASAGILINE MESYLATE
     Dosage: 0.5 MG
  12. RYTARY [Concomitant]
     Active Substance: CARBIDOPA\LEVODOPA
     Dosage: 48.75-195 (UNKNOWN UNITS)
  13. RIVASTIGMINE [Concomitant]
     Active Substance: RIVASTIGMINE
     Dosage: 1.5 MG
  14. TROSPIUM [Concomitant]
     Active Substance: TROSPIUM
  15. MODERNA COVID-19 VACCINE [Concomitant]
     Active Substance: ELASOMERAN
  16. ALBUTEROL SULFATE [Concomitant]
     Active Substance: ALBUTEROL SULFATE
  17. AMLODIPINE BESYLATE [Concomitant]
     Active Substance: AMLODIPINE BESYLATE
     Dosage: 100 % POWDER
  18. QUETIAPINE FUMARATE [Concomitant]
     Active Substance: QUETIAPINE FUMARATE
     Dosage: 100 MILLIGRAM
  19. LOSARTAN AND HYDROCHLOROTHIAZIDE [Concomitant]
     Active Substance: HYDROCHLOROTHIAZIDE\LOSARTAN POTASSIUM
  20. FLONASE ALLERGY RELIEF [Concomitant]
     Active Substance: FLUTICASONE PROPIONATE
  21. DONEPEZIL HYDROCHLORIDE [Concomitant]
     Active Substance: DONEPEZIL HYDROCHLORIDE
     Dosage: 10 MILLIGRAM
  22. ACETAMINOPHEN [Concomitant]
     Active Substance: ACETAMINOPHEN
     Dosage: 325 MILLIGRAM
  23. INBRIJA [Concomitant]
     Active Substance: LEVODOPA
     Dosage: 42 MILLIGRAM CAP W/DEV
  24. CHOLECALCIFEROL [Concomitant]
     Active Substance: CHOLECALCIFEROL
     Dosage: VITAMIN D-400 10 MCG
  25. ASPIRIN [Concomitant]
     Active Substance: ASPIRIN

REACTIONS (10)
  - Death [Fatal]
  - Delusion [Unknown]
  - Abnormal behaviour [Unknown]
  - Adverse drug reaction [Unknown]
  - Product dose omission issue [Recovered/Resolved]
  - Malaise [Unknown]
  - Condition aggravated [Not Recovered/Not Resolved]
  - Hallucination [Not Recovered/Not Resolved]
  - Therapeutic product effect decreased [Unknown]
  - Hallucination, visual [Unknown]

NARRATIVE: CASE EVENT DATE: 20210301
